FAERS Safety Report 16623968 (Version 1)
Quarter: 2019Q3

REPORT INFORMATION
  Report Type: Spontaneous
  Country: DE (occurrence: DE)
  Receive Date: 20190724
  Receipt Date: 20190724
  Transmission Date: 20191004
  Serious: Yes (Hospitalization, Other)
  Sender: FDA-Public Use
  Company Number: DE-AUROBINDO-AUR-APL-2019-042730

PATIENT

DRUGS (13)
  1. FENTANYL. [Suspect]
     Active Substance: FENTANYL
     Indication: PRODUCT USED FOR UNKNOWN INDICATION
     Dosage: UNK, NK NK, INTRAOPERATIVE NARCOSIS, SOLUTION FOR INJECTION / INFUSION
     Route: 042
  2. PIRITRAMIDE [Suspect]
     Active Substance: PIRITRAMIDE
     Indication: PRODUCT USED FOR UNKNOWN INDICATION
     Dosage: UNK, NK NK, INTRAOPERATIVE NARCOSIS, SOLUTION FOR INJECTION / INFUSION
     Route: 042
  3. AKRINOR [Suspect]
     Active Substance: CAFEDRINE HYDROCHLORIDE\THEODRENALINE
     Indication: PRODUCT USED FOR UNKNOWN INDICATION
     Dosage: UNK, NK NK, INTRAOPERATIVE NARCOSIS, SOLUTION FOR INJECTION / INFUSION
     Route: 042
  4. ENOXAPARIN [Concomitant]
     Active Substance: ENOXAPARIN
     Indication: PRODUCT USED FOR UNKNOWN INDICATION
     Dosage: 0.4 MILLILITER, (0.4 ML, 1X DAILY FOR 4 WEEKS, SOLUTION FOR INJECTION / INFUSION)
     Route: 058
  5. PANTOPRAZOLE [Concomitant]
     Active Substance: PANTOPRAZOLE
     Indication: PRODUCT USED FOR UNKNOWN INDICATION
     Dosage: 40 MILLIGRAM, (40 MG, 1-0-0-0, TABLETS)
     Route: 048
  6. COAPROVEL [Concomitant]
     Active Substance: HYDROCHLOROTHIAZIDE\IRBESARTAN
     Indication: PRODUCT USED FOR UNKNOWN INDICATION
     Dosage: UNK, 150 | 12.5 MG, 1-0-0-0, TABLETS
     Route: 048
  7. CEFUROXIM [Suspect]
     Active Substance: CEFUROXIME
     Indication: PRODUCT USED FOR UNKNOWN INDICATION
     Dosage: UNK, NK NK, SINGLE DOSE INTRAOPERATIVE, SOLUTION FOR INJECTION / INFUSION
     Route: 042
  8. APROVEL [Concomitant]
     Active Substance: IRBESARTAN
     Indication: PRODUCT USED FOR UNKNOWN INDICATION
     Dosage: 75 MILLIGRAM, (75 MG, 0-0-1-0, TABLETS)
     Route: 048
  9. METOPROLOL. [Concomitant]
     Active Substance: METOPROLOL
     Indication: PRODUCT USED FOR UNKNOWN INDICATION
     Dosage: 50 MILLIGRAM, (50 MG, 0.5-0-0-0, TABLETS)
     Route: 048
  10. PROPOFOL. [Suspect]
     Active Substance: PROPOFOL
     Indication: PRODUCT USED FOR UNKNOWN INDICATION
     Dosage: UNK, NK NK, INTRAOPERATIVE NARCOSIS, SOLUTION FOR INJECTION / INFUSION
     Route: 042
  11. DESFLURANE. [Suspect]
     Active Substance: DESFLURANE
     Indication: PRODUCT USED FOR UNKNOWN INDICATION
     Dosage: UNK, NK NK, INTRAOPERATIVE NARCOSIS, INHALATION ANESTHETIC
     Route: 055
  12. METAMIZOL [Concomitant]
     Active Substance: METAMIZOLE SODIUM
     Indication: PRODUCT USED FOR UNKNOWN INDICATION
     Dosage: 500 MILLIGRAM, (500 MG, 1-1-1-1, IF NECESSARY, TABLETS)
     Route: 048
  13. LEVOFLOXACIN FILMCOATED TABLET [Suspect]
     Active Substance: LEVOFLOXACIN
     Indication: PRODUCT USED FOR UNKNOWN INDICATION
     Dosage: UNK
     Route: 048

REACTIONS (2)
  - Systemic infection [Unknown]
  - Liver function test abnormal [Unknown]
